FAERS Safety Report 4791104-2 (Version None)
Quarter: 2005Q4

REPORT INFORMATION
  Report Type: 
  Country: None (occurrence: None)
  Receive Date: 20051005
  Receipt Date: 20050916
  Transmission Date: 20060501
  Serious: Yes (Life-Threatening, Hospitalization, Other)
  Sender: FDA-Public Use
  Company Number: EWC050945929

PATIENT
  Age: 34 Year
  Sex: Female

DRUGS (3)
  1. ZYPREXA [Suspect]
     Indication: BIPOLAR I DISORDER
     Dosage: 10 MG/1 DAY
     Dates: start: 20020101, end: 20050801
  2. EFFEXOR [Concomitant]
  3. LAMICTAL [Concomitant]

REACTIONS (5)
  - APPENDICECTOMY [None]
  - CARDIOMEGALY [None]
  - CHOLECYSTECTOMY [None]
  - DYSPNOEA AT REST [None]
  - PULMONARY EMBOLISM [None]
